FAERS Safety Report 8383899-6 (Version None)
Quarter: 2012Q2

REPORT INFORMATION
  Report Type: 
  Country: None (occurrence: None)
  Receive Date: 20120524
  Receipt Date: 20120430
  Transmission Date: 20120825
  Serious: Yes (Hospitalization, Other)
  Sender: FDA-Public Use
  Company Number: US-ROCHE-1057691

PATIENT
  Sex: Female
  Weight: 54.48 kg

DRUGS (12)
  1. SINGULAIR [Concomitant]
  2. ALBUTEROL [Concomitant]
  3. NAPROXEN [Concomitant]
     Indication: PAIN
     Route: 048
  4. OMALIZUMAB [Suspect]
     Indication: ASTHMA
     Route: 058
     Dates: start: 20050101, end: 20110401
  5. OMALIZUMAB [Suspect]
     Route: 058
     Dates: start: 20120403, end: 20120403
  6. MAXAIR [Concomitant]
     Indication: ASTHMA
     Dates: start: 20111214
  7. PROAIR HFA [Concomitant]
     Indication: ASTHMA
     Dates: start: 20111227
  8. ATARAX [Concomitant]
  9. ALLEGRA [Concomitant]
  10. LORATADINE [Concomitant]
     Indication: HYPERSENSITIVITY
     Route: 048
  11. OMALIZUMAB [Suspect]
     Dosage: 1 INJECTION EVERY OTHER MONTH
     Route: 030
     Dates: start: 20110401, end: 20111001
  12. ADVAIR DISKUS 100/50 [Concomitant]

REACTIONS (8)
  - FATIGUE [None]
  - OROPHARYNGEAL PAIN [None]
  - EAR DISORDER [None]
  - HEADACHE [None]
  - SINUS CONGESTION [None]
  - ASTHENIA [None]
  - DISORIENTATION [None]
  - DIZZINESS [None]
